FAERS Safety Report 6460293-6 (Version None)
Quarter: 2009Q4

REPORT INFORMATION
  Report Type: 
  Country: None (occurrence: None)
  Receive Date: 20091130
  Receipt Date: 20091120
  Transmission Date: 20100525
  Serious: Yes (Other)
  Sender: FDA-Public Use
  Company Number: PHHO2009FR14503

PATIENT
  Sex: Female

DRUGS (1)
  1. AFINITOR [Suspect]
     Indication: ENDOMETRIAL CANCER METASTATIC
     Dosage: UNK
     Route: 048
     Dates: start: 20090707, end: 20090913

REACTIONS (2)
  - LIMB DISCOMFORT [None]
  - VENOUS THROMBOSIS [None]
